FAERS Safety Report 6398410-9 (Version None)
Quarter: 2009Q4

REPORT INFORMATION
  Report Type: 
  Country: None (occurrence: None)
  Receive Date: 20091013
  Receipt Date: 20091005
  Transmission Date: 20100525
  Serious: Yes (Other)
  Sender: FDA-Public Use
  Company Number: IT-EISAI INC.-E3810-03200-SPO-IT

PATIENT
  Sex: Female

DRUGS (1)
  1. PARIET (RABEPRAZOLE) [Suspect]
     Route: 048
     Dates: start: 20090826, end: 20090831

REACTIONS (2)
  - HYPERHIDROSIS [None]
  - TACHYCARDIA [None]
